FAERS Safety Report 8244805-8 (Version None)
Quarter: 2012Q1

REPORT INFORMATION
  Report Type: 
  Country: None (occurrence: None)
  Receive Date: 20120329
  Receipt Date: 20110516
  Transmission Date: 20120608
  Serious: No
  Sender: FDA-Public Use
  Company Number: US-MYLANLABS-2011S1008578

PATIENT
  Age: 56 Year
  Sex: Female

DRUGS (12)
  1. FENTANYL-100 [Suspect]
     Indication: PAIN
     Dosage: CHANGED Q72H
     Route: 062
     Dates: start: 20110421, end: 20110503
  2. VITAMIN K TAB [Concomitant]
  3. HALCION [Concomitant]
  4. FENTANYL-100 [Suspect]
     Indication: BACK PAIN
     Dosage: CHANGED Q72H
     Route: 062
     Dates: start: 20110421, end: 20110503
  5. SIMCOR /00848101/ [Concomitant]
  6. LOVAZA [Concomitant]
  7. CYMBALTA [Concomitant]
  8. FENTANYL-100 [Suspect]
     Indication: NECK PAIN
     Dosage: CHANGED Q72H
     Route: 062
     Dates: start: 20110421, end: 20110503
  9. RIBOFLAVIN [Concomitant]
  10. SOMA [Concomitant]
  11. DILAUDID [Concomitant]
  12. VITAMIN D [Concomitant]

REACTIONS (5)
  - CHILLS [None]
  - APPLICATION SITE PAIN [None]
  - HYPERHIDROSIS [None]
  - PRURITUS GENERALISED [None]
  - APPLICATION SITE PRURITUS [None]
